FAERS Safety Report 24966457 (Version 2)
Quarter: 2025Q1

REPORT INFORMATION
  Report Type: Spontaneous
  Country: SI (occurrence: SI)
  Receive Date: 20250213
  Receipt Date: 20250326
  Transmission Date: 20250408
  Serious: No
  Sender: TAKEDA
  Company Number: SI-TAKEDA-2025TUS013513

PATIENT
  Sex: Male

DRUGS (1)
  1. ENTYVIO [Suspect]
     Active Substance: VEDOLIZUMAB
     Indication: Inflammatory bowel disease
     Dosage: UNK UNK, Q2WEEKS

REACTIONS (1)
  - Drug effect less than expected [Unknown]
